FAERS Safety Report 13962850 (Version 1)
Quarter: 2017Q3

REPORT INFORMATION
  Report Type: Spontaneous
  Country: CH (occurrence: CH)
  Receive Date: 20170913
  Receipt Date: 20170913
  Transmission Date: 20171128
  Serious: Yes (Death, Other)
  Sender: FDA-Public Use
  Company Number: CH-VISTAPHARM, INC.-VER201709-000508

PATIENT
  Age: 45 Year
  Sex: Male

DRUGS (1)
  1. HYDROCODONE AND ACETAMINOPHEN [Suspect]
     Active Substance: ACETAMINOPHEN\HYDROCODONE
     Indication: PRODUCT USED FOR UNKNOWN INDICATION

REACTIONS (7)
  - Self-medication [Fatal]
  - Toxicity to various agents [Unknown]
  - Duodenal perforation [Unknown]
  - Pneumothorax [Fatal]
  - Peritonitis [Unknown]
  - Hepatitis toxic [Unknown]
  - Vomiting [Unknown]
